FAERS Safety Report 25406243 (Version 1)
Quarter: 2025Q2

REPORT INFORMATION
  Report Type: Spontaneous
  Country: GB (occurrence: GB)
  Receive Date: 20250606
  Receipt Date: 20250606
  Transmission Date: 20250717
  Serious: Yes (Hospitalization, Other)
  Sender: AUROBINDO
  Company Number: GB-MHRA-MED-202505221518469860-TVPZK

PATIENT
  Age: 63 Year
  Sex: Female

DRUGS (1)
  1. DULOXETINE [Suspect]
     Active Substance: DULOXETINE
     Indication: Product used for unknown indication
     Route: 065

REACTIONS (1)
  - Renal disorder [Recovered/Resolved]
